FAERS Safety Report 23314251 (Version 3)
Quarter: 2023Q4

REPORT INFORMATION
  Report Type: Spontaneous
  Country: US (occurrence: US)
  Receive Date: 20231219
  Receipt Date: 20231220
  Transmission Date: 20240109
  Serious: No
  Sender: FDA-Public Use
  Company Number: US-OPELLA-2023OHG017452

PATIENT
  Sex: Female

DRUGS (1)
  1. GOLD BOND MEDICATED ADVANCED HEALING [Suspect]
     Active Substance: PETROLATUM
     Indication: Product used for unknown indication

REACTIONS (2)
  - Urticaria [Unknown]
  - Product physical consistency issue [Unknown]
